FAERS Safety Report 6194165-1 (Version None)
Quarter: 2009Q2

REPORT INFORMATION
  Report Type: 
  Country: None (occurrence: None)
  Receive Date: 20090518
  Receipt Date: 20090511
  Transmission Date: 20091009
  Serious: Yes (Hospitalization)
  Sender: FDA-Public Use
  Company Number: JP-ABBOTT-09P-087-0573454-00

PATIENT
  Age: 44 Year
  Sex: Female

DRUGS (1)
  1. LEUPLIN DEPOT [Suspect]
     Indication: UTERINE LEIOMYOMA
     Route: 050
     Dates: start: 20090226

REACTIONS (2)
  - MYELITIS [None]
  - OPTIC NEURITIS [None]
